FAERS Safety Report 9115498 (Version 2)
Quarter: 2013Q1

REPORT INFORMATION
  Report Type: Spontaneous
  Country: US (occurrence: None)
  Receive Date: 20130129
  Receipt Date: 20130305
  Transmission Date: 20140127
  Serious: Yes (Other)
  Sender: FDA-Public Use
  Company Number: USA/USA/13/0027642

PATIENT
  Age: 70 Year
  Sex: Male

DRUGS (5)
  1. SIMVASTATIN (SIMVASTATIN) [Suspect]
     Indication: DYSLIPIDAEMIA
  2. RIVASTIGMINE TARTRATE [Suspect]
     Indication: DEMENTIA
  3. LORAZEPAM (LORAZEPAM) [Suspect]
     Indication: SLEEP DISORDER
  4. DULOXETINE [Suspect]
     Indication: MAJOR DEPRESSION
  5. MIRTAZAPINE (MIRTAZAPINE) [Suspect]
     Indication: MAJOR DEPRESSION

REACTIONS (7)
  - Major depression [None]
  - Disease recurrence [None]
  - Confusional state [None]
  - Agitation [None]
  - Cognitive disorder [None]
  - Impaired driving ability [None]
  - Fear [None]
